FAERS Safety Report 21708713 (Version 1)
Quarter: 2022Q4

REPORT INFORMATION
  Report Type: Report from Study
  Country: US (occurrence: US)
  Receive Date: 20221210
  Receipt Date: 20221210
  Transmission Date: 20230113
  Serious: Yes (Hospitalization)
  Sender: FDA-Public Use
  Company Number: US-ABBVIE-4192290

PATIENT
  Sex: Female

DRUGS (1)
  1. HUMIRA [Suspect]
     Active Substance: ADALIMUMAB
     Indication: Crohn^s disease
     Dosage: STRENGTH: 40 MG?CITRATE FREE
     Route: 058
     Dates: end: 20221106

REACTIONS (6)
  - Colitis [Unknown]
  - Abdominal infection [Unknown]
  - Crohn^s disease [Unknown]
  - Malaise [Unknown]
  - Illness [Unknown]
  - Abdominal distension [Unknown]
